FAERS Safety Report 9650422 (Version 1)
Quarter: 2013Q4

REPORT INFORMATION
  Report Type: Spontaneous
  Country: GB (occurrence: GB)
  Receive Date: 20131028
  Receipt Date: 20131028
  Transmission Date: 20140711
  Serious: Yes (Other)
  Sender: FDA-Public Use
  Company Number: GB-ROCHE-1294751

PATIENT
  Age: 73 Year
  Sex: 0

DRUGS (7)
  1. CAPECITABINE [Suspect]
     Indication: PRODUCT USED FOR UNKNOWN INDICATION
     Dosage: 2G/M2/DAY DAYS 1-14, 01/OCT/2008-06/MAY-2009 11 CYCLES
     Route: 048
  2. CAPECITABINE [Suspect]
     Route: 048
     Dates: start: 20090527, end: 20091104
  3. BEVACIZUMAB [Suspect]
     Indication: PRODUCT USED FOR UNKNOWN INDICATION
     Dosage: 01/OCT/2008-06/MAY-2009 11 CYCLES
     Route: 042
     Dates: start: 20081001
  4. BEVACIZUMAB [Suspect]
     Route: 042
     Dates: start: 20090527, end: 20091104
  5. OXALIPLATIN [Concomitant]
     Route: 065
     Dates: start: 20090527, end: 20091104
  6. IRINOTECAN [Concomitant]
  7. CETUXIMAB [Concomitant]

REACTIONS (1)
  - Metastases to liver [Unknown]
